FAERS Safety Report 7386209-6 (Version None)
Quarter: 2011Q1

REPORT INFORMATION
  Report Type: 
  Country: None (occurrence: None)
  Receive Date: 20110323
  Receipt Date: 20110309
  Transmission Date: 20110831
  Serious: Yes (Hospitalization)
  Sender: FDA-Public Use
  Company Number: 2011SP011265

PATIENT
  Sex: Male
  Weight: 85 kg

DRUGS (3)
  1. REBETOL [Suspect]
     Indication: HEPATITIS C
     Dosage: PO
     Route: 048
  2. PEG-INTRON [Suspect]
     Indication: HEPATITIS C
  3. METADON /00068901/) [Concomitant]

REACTIONS (4)
  - FATIGUE [None]
  - PERSONALITY CHANGE [None]
  - DISORIENTATION [None]
  - CONFUSIONAL STATE [None]
